FAERS Safety Report 8146348-9 (Version None)
Quarter: 2012Q1

REPORT INFORMATION
  Report Type: 
  Country: None (occurrence: None)
  Receive Date: 20120217
  Receipt Date: 20110826
  Transmission Date: 20120608
  Serious: No
  Sender: FDA-Public Use
  Company Number: US-ABBOTT-11P-163-0849610-00

PATIENT
  Sex: Male

DRUGS (2)
  1. PAIN MEDICATIONS (NOS) [Concomitant]
     Indication: PAIN
  2. SIMCOR [Suspect]
     Indication: PRODUCT USED FOR UNKNOWN INDICATION
     Dates: start: 20100801, end: 20110801

REACTIONS (5)
  - DIABETES MELLITUS [None]
  - NEPHROLITHIASIS [None]
  - CYST [None]
  - HERPES ZOSTER [None]
  - BLOOD URIC ACID INCREASED [None]
